FAERS Safety Report 9194692 (Version 1)
Quarter: 2013Q1

REPORT INFORMATION
  Report Type: Spontaneous
  Country: US (occurrence: US)
  Receive Date: 20130328
  Receipt Date: 20130328
  Transmission Date: 20140127
  Serious: No
  Sender: FDA-Public Use
  Company Number: US-ALLERGAN-1210363US

PATIENT
  Age: 66 Year
  Sex: Female

DRUGS (6)
  1. LATISSE 0.03% [Suspect]
     Indication: GROWTH OF EYELASHES
     Dosage: 2 GTT, QHS
     Route: 061
  2. LATISSE 0.03% [Suspect]
     Dosage: 1 GTT, SINGLE
     Route: 047
     Dates: start: 20120726, end: 20120726
  3. REFRESH OPTIVE ADVANCED [Concomitant]
     Indication: DRY EYE
     Dosage: 2 GTT, PRN
     Route: 047
  4. BIOIDENTICAL HORMONES [Concomitant]
     Indication: POSTMENOPAUSE
     Dosage: UNK
  5. RETIN A [Concomitant]
     Indication: SKIN WRINKLING
     Dosage: UNK UNK, QHS
     Route: 061
  6. LUBRICATING EYE DROPS [Concomitant]
     Indication: EYE LUBRICATION THERAPY
     Dosage: UNK, PRN

REACTIONS (9)
  - Incorrect route of drug administration [Unknown]
  - Drug administered at inappropriate site [Recovered/Resolved]
  - Therapeutic response unexpected [Unknown]
  - Drug administered at inappropriate site [Unknown]
  - Hair colour changes [Not Recovered/Not Resolved]
  - Hair growth abnormal [Not Recovered/Not Resolved]
  - Scleral hyperaemia [Recovered/Resolved]
  - Scleral hyperaemia [Recovered/Resolved]
  - Erythema of eyelid [Not Recovered/Not Resolved]
